FAERS Safety Report 11540365 (Version 1)
Quarter: 2015Q3

REPORT INFORMATION
  Report Type: Spontaneous
  Country: US (occurrence: US)
  Receive Date: 20150923
  Receipt Date: 20150923
  Transmission Date: 20151125
  Serious: No
  Sender: FDA-Public Use
  Company Number: US-BEH-2014044614

PATIENT
  Sex: Female
  Weight: 85 kg

DRUGS (28)
  1. POTASSIUM CL ER [Concomitant]
  2. SINGULAIR [Concomitant]
     Active Substance: MONTELUKAST SODIUM
  3. EPIPEN [Concomitant]
     Active Substance: EPINEPHRINE
  4. VENTOLIN HFA [Concomitant]
     Active Substance: ALBUTEROL SULFATE
     Route: 055
  5. VITAMIN D3 [Concomitant]
     Active Substance: CHOLECALCIFEROL
  6. GABAPENTIN. [Concomitant]
     Active Substance: GABAPENTIN
  7. FLONASE [Concomitant]
     Active Substance: FLUTICASONE PROPIONATE
  8. PRIVIGEN [Suspect]
     Active Substance: HUMAN IMMUNOGLOBULIN G
     Route: 042
  9. KEFLEX [Concomitant]
     Active Substance: CEPHALEXIN
  10. SYNTHROID [Concomitant]
     Active Substance: LEVOTHYROXINE SODIUM
  11. PRIVIGEN [Suspect]
     Active Substance: HUMAN IMMUNOGLOBULIN G
     Indication: IMMUNODEFICIENCY COMMON VARIABLE
     Route: 042
  12. CVS VITAMIN D3 [Concomitant]
  13. CYANOCOBALAMIN. [Concomitant]
     Active Substance: CYANOCOBALAMIN
     Dosage: 1000 MCG/ML
  14. ACETAMINOPHEN. [Concomitant]
     Active Substance: ACETAMINOPHEN
  15. DIPHENHYDRAMINE. [Concomitant]
     Active Substance: DIPHENHYDRAMINE
  16. HEPARIN [Concomitant]
     Active Substance: HEPARIN SODIUM
  17. PRILOSEC [Concomitant]
     Active Substance: OMEPRAZOLE MAGNESIUM
  18. BENTYL [Concomitant]
     Active Substance: DICYCLOMINE HYDROCHLORIDE
  19. MONURAL [Concomitant]
  20. GLIPIZIDE. [Concomitant]
     Active Substance: GLIPIZIDE
  21. LASIX [Concomitant]
     Active Substance: FUROSEMIDE
  22. LOVAZA [Concomitant]
     Active Substance: OMEGA-3-ACID ETHYL ESTERS
  23. SYMBICORT [Concomitant]
     Active Substance: BUDESONIDE\FORMOTEROL FUMARATE DIHYDRATE
  24. FLINTSTONES IRON TAB [Concomitant]
  25. LASIX [Concomitant]
     Active Substance: FUROSEMIDE
  26. AZITHROMYCIN [Concomitant]
     Active Substance: AZITHROMYCIN ANHYDROUS
  27. FENOFIBRATE. [Concomitant]
     Active Substance: FENOFIBRATE
  28. TEGRETOL XR [Concomitant]
     Active Substance: CARBAMAZEPINE

REACTIONS (1)
  - Headache [Unknown]
